FAERS Safety Report 9322263 (Version 5)
Quarter: 2014Q1

REPORT INFORMATION
  Report Type: Spontaneous
  Country: US (occurrence: US)
  Receive Date: 20130531
  Receipt Date: 20140121
  Transmission Date: 20141002
  Serious: Yes (Hospitalization)
  Sender: FDA-Public Use
  Company Number: US-JNJFOC-20130503195

PATIENT
  Age: 36 Year
  Sex: Female
  Weight: 66.23 kg

DRUGS (23)
  1. SIMPONI [Suspect]
     Indication: RHEUMATOID ARTHRITIS
     Route: 058
     Dates: start: 20130421
  2. SIMPONI [Suspect]
     Indication: RHEUMATOID ARTHRITIS
     Route: 058
     Dates: start: 20130324
  3. SIMPONI [Suspect]
     Indication: RHEUMATOID ARTHRITIS
     Route: 058
     Dates: start: 20130224
  4. SIMPONI [Suspect]
     Indication: RHEUMATOID ARTHRITIS
     Route: 058
     Dates: start: 20130127
  5. SIMPONI [Suspect]
     Indication: RHEUMATOID ARTHRITIS
     Route: 058
     Dates: start: 20121230
  6. VERAMYST [Concomitant]
     Dosage: 2SPRAYS
     Route: 045
  7. XOPENEX [Concomitant]
     Route: 065
  8. CYCLOSPORINE [Concomitant]
     Route: 065
  9. ELETRIPTAN [Concomitant]
     Indication: HEADACHE
     Route: 048
  10. METHOTREXATE [Concomitant]
     Dosage: 10 TAB PER WEEK
     Route: 048
  11. PREDNISONE [Concomitant]
     Route: 065
  12. ZANTAC [Concomitant]
     Route: 065
  13. MIDRIN [Concomitant]
     Route: 048
  14. FLEXERIL [Concomitant]
     Dosage: ONE DAILY AS NEEDED
     Route: 048
  15. VALTREX [Concomitant]
     Dosage: 2 PILLS
     Route: 065
  16. FOLVITE [Concomitant]
     Dosage: 1 TABLET
     Route: 048
  17. MELATONIN [Concomitant]
     Dosage: AT BED TIME
     Route: 065
  18. ASMANEX [Concomitant]
     Route: 065
  19. IUD [Concomitant]
     Route: 065
  20. PSEUDOEPHEDRINE [Concomitant]
     Route: 048
  21. EPINEPHRINE [Concomitant]
     Indication: ANAPHYLACTIC REACTION
     Route: 065
  22. MULTIVITAMINS [Concomitant]
     Route: 048
  23. ULTRACET [Concomitant]
     Indication: PAIN
     Dosage: 37.5-325MG AS NEEDED
     Route: 048

REACTIONS (7)
  - Urticaria [Recovered/Resolved]
  - Erythema [Recovered/Resolved]
  - Dyspnoea [Recovered/Resolved]
  - Rash [Recovered/Resolved]
  - Pruritus [Recovered/Resolved]
  - Chest discomfort [Recovered/Resolved]
  - Paraesthesia [Recovered/Resolved]
